FAERS Safety Report 11442529 (Version 1)
Quarter: 2015Q3

REPORT INFORMATION
  Report Type: Spontaneous
  Country: CH (occurrence: CH)
  Receive Date: 20150901
  Receipt Date: 20150901
  Transmission Date: 20151125
  Serious: Yes (Life-Threatening, Hospitalization)
  Sender: FDA-Public Use
  Company Number: CH-TEVA-559094ISR

PATIENT
  Age: 56 Year
  Sex: Male
  Weight: 65 kg

DRUGS (6)
  1. PADMA [Concomitant]
     Dosage: SEVERAL PADMA PRODUCTS AVAILABLE WITH VARYING COMPOSITIONS
     Route: 065
  2. TAMSULOSIN-MEPHA T [Concomitant]
     Active Substance: TAMSULOSIN
     Route: 065
  3. XALATAN AUGENTROPFEN [Concomitant]
     Route: 065
  4. ARTERIA VITA [Concomitant]
     Route: 065
  5. FLUCONAZOL-MEPHA N 50 [Suspect]
     Active Substance: FLUCONAZOLE
     Indication: TINEA VERSICOLOUR
     Dosage: 50 MILLIGRAM DAILY;
     Route: 048
     Dates: start: 20150423, end: 20150425
  6. MAGNESIUM DIASPORAL 500 [Concomitant]
     Route: 065

REACTIONS (3)
  - Epilepsy [Recovered/Resolved]
  - Venous occlusion [Unknown]
  - Cerebral venous thrombosis [Unknown]

NARRATIVE: CASE EVENT DATE: 20150425
